FAERS Safety Report 19462118 (Version 2)
Quarter: 2021Q4

REPORT INFORMATION
  Report Type: Report from Study
  Country: FI (occurrence: FI)
  Receive Date: 20210625
  Receipt Date: 20211004
  Transmission Date: 20220303
  Serious: Yes (Hospitalization)
  Sender: FDA-Public Use
  Company Number: 2021A001503

PATIENT
  Age: 25643 Day
  Sex: Female

DRUGS (41)
  1. DURVALUMAB [Suspect]
     Active Substance: DURVALUMAB
     Indication: Ovarian cancer
     Dosage: 1120.0MG ONCE/SINGLE ADMINISTRATION
     Route: 042
     Dates: start: 20200721, end: 20200721
  2. DURVALUMAB [Suspect]
     Active Substance: DURVALUMAB
     Indication: Ovarian cancer
     Dosage: 1120.0MG ONCE/SINGLE ADMINISTRATION
     Route: 042
     Dates: start: 20200813, end: 20200813
  3. DURVALUMAB [Suspect]
     Active Substance: DURVALUMAB
     Indication: Ovarian cancer
     Dosage: 1120.0MG ONCE/SINGLE ADMINISTRATION
     Route: 042
     Dates: start: 20200901, end: 20200901
  4. DURVALUMAB [Suspect]
     Active Substance: DURVALUMAB
     Indication: Ovarian cancer
     Dosage: 1120.0MG ONCE/SINGLE ADMINISTRATION
     Route: 042
     Dates: start: 20200922, end: 20200922
  5. DURVALUMAB [Suspect]
     Active Substance: DURVALUMAB
     Indication: Ovarian cancer
     Dosage: 1120.0MG ONCE/SINGLE ADMINISTRATION
     Route: 042
     Dates: start: 20201103, end: 20201103
  6. DURVALUMAB [Suspect]
     Active Substance: DURVALUMAB
     Indication: Ovarian cancer
     Dosage: 1120.0MG ONCE/SINGLE ADMINISTRATION
     Route: 042
     Dates: start: 20201124, end: 20201124
  7. DURVALUMAB [Suspect]
     Active Substance: DURVALUMAB
     Indication: Ovarian cancer
     Dosage: 1120.0MG ONCE/SINGLE ADMINISTRATION
     Route: 042
     Dates: start: 20201215, end: 20201215
  8. CARBOPLATIN [Concomitant]
     Active Substance: CARBOPLATIN
     Indication: Ovarian cancer
     Dosage: 530.0MG ONCE/SINGLE ADMINISTRATION
     Route: 065
     Dates: start: 20200702, end: 20200702
  9. CARBOPLATIN [Concomitant]
     Active Substance: CARBOPLATIN
     Indication: Ovarian cancer
     Dosage: 480.0MG ONCE/SINGLE ADMINISTRATION
     Route: 065
     Dates: start: 20200721, end: 20200721
  10. CARBOPLATIN [Concomitant]
     Active Substance: CARBOPLATIN
     Indication: Ovarian cancer
     Dosage: 530.0MG ONCE/SINGLE ADMINISTRATION
     Route: 065
     Dates: start: 20200813, end: 20200813
  11. CARBOPLATIN [Concomitant]
     Active Substance: CARBOPLATIN
     Indication: Ovarian cancer
     Dosage: 530.0MG ONCE/SINGLE ADMINISTRATION
     Route: 065
     Dates: start: 20200901, end: 20200901
  12. CARBOPLATIN [Concomitant]
     Active Substance: CARBOPLATIN
     Indication: Ovarian cancer
     Dosage: 530.0MG ONCE/SINGLE ADMINISTRATION
     Route: 065
     Dates: start: 20200922, end: 20200922
  13. CARBOPLATIN [Concomitant]
     Active Substance: CARBOPLATIN
     Indication: Ovarian cancer
     Dosage: 530.0MG ONCE/SINGLE ADMINISTRATION
     Route: 065
     Dates: start: 20201013, end: 20201013
  14. PACLITAXEL [Concomitant]
     Active Substance: PACLITAXEL
     Indication: Ovarian cancer
     Dosage: 289.0MG ONCE/SINGLE ADMINISTRATION
     Route: 065
     Dates: start: 20200702, end: 20200702
  15. PACLITAXEL [Concomitant]
     Active Substance: PACLITAXEL
     Indication: Ovarian cancer
     Dosage: 289.0MG ONCE/SINGLE ADMINISTRATION
     Route: 065
     Dates: start: 20200721, end: 20200721
  16. PACLITAXEL [Concomitant]
     Active Substance: PACLITAXEL
     Indication: Ovarian cancer
     Dosage: 289.0MG ONCE/SINGLE ADMINISTRATION
     Route: 065
     Dates: start: 20200813, end: 20200813
  17. PACLITAXEL [Concomitant]
     Active Substance: PACLITAXEL
     Indication: Ovarian cancer
     Dosage: 289.0MG ONCE/SINGLE ADMINISTRATION
     Route: 065
     Dates: start: 20200901, end: 20200901
  18. PACLITAXEL [Concomitant]
     Active Substance: PACLITAXEL
     Indication: Ovarian cancer
     Dosage: 289.0MG ONCE/SINGLE ADMINISTRATION
     Route: 065
     Dates: start: 20200922, end: 20200922
  19. PACLITAXEL [Concomitant]
     Active Substance: PACLITAXEL
     Indication: Ovarian cancer
     Dosage: 289.0MG ONCE/SINGLE ADMINISTRATION
     Route: 065
     Dates: start: 20201013, end: 20201013
  20. BEVACIZUMAB [Concomitant]
     Active Substance: BEVACIZUMAB
     Indication: Ovarian cancer
     Dosage: 990.0MG ONCE/SINGLE ADMINISTRATION
     Route: 065
     Dates: start: 20200721, end: 20200721
  21. BEVACIZUMAB [Concomitant]
     Active Substance: BEVACIZUMAB
     Indication: Ovarian cancer
     Dosage: 990.0MG ONCE/SINGLE ADMINISTRATION
     Route: 065
     Dates: start: 20200813, end: 20200813
  22. BEVACIZUMAB [Concomitant]
     Active Substance: BEVACIZUMAB
     Indication: Ovarian cancer
     Dosage: 990.0MG ONCE/SINGLE ADMINISTRATION
     Route: 065
     Dates: start: 20200901, end: 20200901
  23. BEVACIZUMAB [Concomitant]
     Active Substance: BEVACIZUMAB
     Indication: Ovarian cancer
     Dosage: 990.0MG ONCE/SINGLE ADMINISTRATION
     Route: 065
     Dates: start: 20200922, end: 20200922
  24. BEVACIZUMAB [Concomitant]
     Active Substance: BEVACIZUMAB
     Indication: Ovarian cancer
     Dosage: 990.0MG ONCE/SINGLE ADMINISTRATION
     Route: 065
     Dates: start: 20201013, end: 20201013
  25. BEVACIZUMAB [Concomitant]
     Active Substance: BEVACIZUMAB
     Indication: Ovarian cancer
     Dosage: 915.0MG ONCE/SINGLE ADMINISTRATION
     Route: 065
     Dates: start: 20201103, end: 20201103
  26. BEVACIZUMAB [Concomitant]
     Active Substance: BEVACIZUMAB
     Indication: Ovarian cancer
     Dosage: 915.0MG ONCE/SINGLE ADMINISTRATION
     Route: 065
     Dates: start: 20201124, end: 20201124
  27. BEVACIZUMAB [Concomitant]
     Active Substance: BEVACIZUMAB
     Indication: Ovarian cancer
     Dosage: 915.0MG ONCE/SINGLE ADMINISTRATION
     Route: 065
     Dates: start: 20201215, end: 20201215
  28. BEVACIZUMAB [Concomitant]
     Active Substance: BEVACIZUMAB
     Indication: Ovarian cancer
     Dosage: 915.0MG ONCE/SINGLE ADMINISTRATION
     Route: 065
     Dates: start: 20210105, end: 20210105
  29. BEVACIZUMAB [Concomitant]
     Active Substance: BEVACIZUMAB
     Indication: Ovarian cancer
     Dosage: 915.0MG ONCE/SINGLE ADMINISTRATION
     Route: 065
     Dates: start: 20210216, end: 20210216
  30. BEVACIZUMAB [Concomitant]
     Active Substance: BEVACIZUMAB
     Indication: Ovarian cancer
     Dosage: 915.0MG ONCE/SINGLE ADMINISTRATION
     Route: 065
     Dates: start: 20210309, end: 20210309
  31. BEVACIZUMAB [Concomitant]
     Active Substance: BEVACIZUMAB
     Indication: Ovarian cancer
     Dosage: 915.0MG ONCE/SINGLE ADMINISTRATION
     Route: 065
     Dates: start: 20210420, end: 20210420
  32. BEVACIZUMAB [Concomitant]
     Active Substance: BEVACIZUMAB
     Indication: Ovarian cancer
     Dosage: 915.0MG ONCE/SINGLE ADMINISTRATION
     Route: 065
     Dates: start: 20210511, end: 20210511
  33. BEVACIZUMAB [Concomitant]
     Active Substance: BEVACIZUMAB
     Indication: Ovarian cancer
     Dosage: 915.0MG ONCE/SINGLE ADMINISTRATION
     Route: 065
     Dates: start: 20210601, end: 20210601
  34. IBUPROFEN [Concomitant]
     Active Substance: IBUPROFEN
     Indication: Procedural pain
     Route: 048
     Dates: start: 20200608
  35. COSOPT [Concomitant]
     Active Substance: DORZOLAMIDE HYDROCHLORIDE\TIMOLOL MALEATE
     Indication: Glaucoma
     Route: 047
     Dates: start: 20191003
  36. LUMIGAN [Concomitant]
     Active Substance: BIMATOPROST
     Indication: Glaucoma
     Route: 047
     Dates: start: 20191003
  37. POLYETHYLENE GLYCOL 4000 [Concomitant]
     Active Substance: POLYETHYLENE GLYCOL 4000
     Indication: Constipation prophylaxis
     Route: 048
     Dates: start: 20200630
  38. LOPERAMIDE [Concomitant]
     Active Substance: LOPERAMIDE
     Indication: Diarrhoea
     Route: 048
     Dates: start: 20200813
  39. ESOMEPRAZOLE [Concomitant]
     Active Substance: ESOMEPRAZOLE
     Indication: Prophylaxis
     Route: 048
     Dates: start: 20200813, end: 20210329
  40. CARBIMAZOLE [Concomitant]
     Active Substance: CARBIMAZOLE
     Indication: Hyperthyroidism
     Route: 048
     Dates: start: 20201016, end: 20201109
  41. CARBIMAZOLE [Concomitant]
     Active Substance: CARBIMAZOLE
     Indication: Hyperthyroidism
     Route: 048
     Dates: start: 20201110, end: 20210201

REACTIONS (1)
  - Liver function test increased [Recovered/Resolved]

NARRATIVE: CASE EVENT DATE: 20210104
